FAERS Safety Report 6559205-6 (Version None)
Quarter: 2010Q1

REPORT INFORMATION
  Report Type: 
  Country: None (occurrence: None)
  Receive Date: 20100129
  Receipt Date: 20091015
  Transmission Date: 20100710
  Serious: No
  Sender: FDA-Public Use
  Company Number: US-ABBOTT-04P-163-0284416-00

PATIENT
  Sex: Female
  Weight: 109 kg

DRUGS (9)
  1. HUMIRA [Suspect]
     Indication: RHEUMATOID ARTHRITIS
     Route: 058
     Dates: start: 20041101, end: 20041201
  2. MICARDIS [Concomitant]
     Indication: HYPERTENSION
     Route: 048
     Dates: start: 20010101
  3. ATENOLOL [Concomitant]
     Indication: HYPERTENSION
     Route: 048
     Dates: start: 19800101
  4. DICLOFENAC [Concomitant]
     Indication: ARTHRITIS
     Route: 048
     Dates: start: 20030101
  5. PROTONIX [Concomitant]
     Indication: GASTRIC DISORDER
     Route: 048
     Dates: start: 20040901
  6. FOLIC ACID [Concomitant]
     Indication: DRUG USE FOR UNKNOWN INDICATION
     Route: 048
     Dates: start: 20030101
  7. XANAX [Concomitant]
     Indication: ANXIETY
     Route: 048
  8. DARVOCET-N 100 [Concomitant]
     Indication: RHEUMATOID ARTHRITIS
     Route: 048
  9. DARVOCET-N 100 [Concomitant]
     Indication: PAIN

REACTIONS (15)
  - ABASIA [None]
  - ADVERSE DRUG REACTION [None]
  - ASTHENIA [None]
  - CHILLS [None]
  - MALAISE [None]
  - MEMORY IMPAIRMENT [None]
  - MICTURITION URGENCY [None]
  - PRURITUS [None]
  - PYREXIA [None]
  - RASH MACULAR [None]
  - THINKING ABNORMAL [None]
  - THROAT IRRITATION [None]
  - UNEVALUABLE EVENT [None]
  - URINARY INCONTINENCE [None]
  - URINARY TRACT INFECTION [None]
